FAERS Safety Report 15385660 (Version 1)
Quarter: 2018Q3

REPORT INFORMATION
  Report Type: Spontaneous
  Country: JP (occurrence: JP)
  Receive Date: 20180914
  Receipt Date: 20180914
  Transmission Date: 20181010
  Serious: Yes (Other)
  Sender: FDA-Public Use
  Company Number: JP-EISAI MEDICAL RESEARCH-EC-2018-045043

PATIENT
  Sex: Male
  Weight: 62 kg

DRUGS (1)
  1. LENVIMA [Suspect]
     Active Substance: LENVATINIB
     Indication: HEPATOCELLULAR CARCINOMA
     Dosage: UNKNOWN
     Route: 048
     Dates: start: 201804, end: 2018

REACTIONS (6)
  - Cholangitis chronic [Unknown]
  - Diaphragmatic injury [Unknown]
  - Biliary fistula [Unknown]
  - Pneumonia [Unknown]
  - Lung abscess [Unknown]
  - Bronchial fistula [Unknown]

NARRATIVE: CASE EVENT DATE: 2018
